FAERS Safety Report 6867759-5 (Version None)
Quarter: 2010Q3

REPORT INFORMATION
  Report Type: 
  Country: None (occurrence: None)
  Receive Date: 20100722
  Receipt Date: 20100719
  Transmission Date: 20110219
  Serious: Yes (Hospitalization, Other)
  Sender: FDA-Public Use
  Company Number: JP-ROXANE LABORATORIES, INC.-2010-RO-00862RO

PATIENT
  Age: 73 Year
  Sex: Female
  Weight: 40 kg

DRUGS (19)
  1. FUROSEMIDE [Suspect]
  2. SERTRALINE HCL [Suspect]
     Indication: DEPRESSION
     Dosage: 50 MG
  3. LITHIUM CARBONATE [Suspect]
     Indication: DEPRESSION
     Dosage: 400 MG
  4. LAMOTRIGINE [Suspect]
     Indication: DEPRESSION
     Dosage: 50 MG
  5. ASPIRIN [Suspect]
  6. WARFARIN SODIUM [Suspect]
  7. ISOSORBIDE [Suspect]
  8. ENALAPRIL MALEATE [Suspect]
  9. BISOPROLOL [Suspect]
  10. ATORVASTATIN [Suspect]
  11. PAROXETINE HCL [Suspect]
     Indication: DEPRESSION
     Dosage: 40 MG
  12. AMOXAPINE [Suspect]
     Indication: DEPRESSION
     Dosage: 75 MG
  13. MILNACIPRAN [Suspect]
     Indication: DEPRESSION
     Dosage: 50 MG
  14. MIANSERIN [Suspect]
     Indication: DEPRESSION
     Dosage: 10 MG
  15. TRAZODONE [Suspect]
     Indication: DEPRESSION
     Dosage: 125 MG
  16. SETIPTILINE [Suspect]
     Indication: DEPRESSION
     Dosage: 3 MG
  17. MAPROTILINE [Suspect]
     Indication: DEPRESSION
     Dosage: 75 MG
  18. CLONAZEPAM [Suspect]
     Indication: DEPRESSION
     Dosage: 1.5 MG
  19. CLOMIPRAMINE [Suspect]
     Indication: DEPRESSION
     Dosage: 10 MG

REACTIONS (3)
  - DEPRESSION [None]
  - MULTIPLE-DRUG RESISTANCE [None]
  - SINUS BRADYCARDIA [None]
